FAERS Safety Report 7364918-2 (Version None)
Quarter: 2011Q1

REPORT INFORMATION
  Report Type: 
  Country: None (occurrence: None)
  Receive Date: 20110316
  Receipt Date: 20110316
  Transmission Date: 20110831
  Serious: Yes (Other)
  Sender: FDA-Public Use
  Company Number: None

PATIENT
  Sex: Male
  Weight: 122.4712 kg

DRUGS (1)
  1. KLOR-CON M20 [Suspect]
     Indication: ELECTROLYTE SUBSTITUTION THERAPY
     Dosage: 1 A DAY
     Dates: start: 20101001, end: 20110226

REACTIONS (2)
  - DYSPNOEA [None]
  - PRURITUS [None]
